FAERS Safety Report 5411739-3 (Version None)
Quarter: 2007Q3

REPORT INFORMATION
  Report Type: 
  Country: None (occurrence: None)
  Receive Date: 20070813
  Receipt Date: 20070807
  Transmission Date: 20080115
  Serious: Yes (Hospitalization)
  Sender: FDA-Public Use
  Company Number: PHNR2007AU01457

PATIENT
  Age: 68 Year
  Sex: Female

DRUGS (9)
  1. SLOW-K [Suspect]
     Dosage: DAILY
     Dates: end: 20040629
  2. CELEBREX [Suspect]
     Indication: GOUT
     Dosage: 400 MG, QD
     Route: 048
     Dates: end: 20040629
  3. METFORMIN HYDROCHLORIDE [Suspect]
     Indication: DIABETES MELLITUS
     Dosage: 1 G, QD
     Route: 048
     Dates: end: 20040629
  4. LISINOPRIL [Suspect]
     Indication: CARDIAC FAILURE ACUTE
     Dosage: 20 MG, QD
     Route: 048
     Dates: end: 20040629
  5. FRUSEMIDE [Suspect]
     Indication: CARDIAC FAILURE ACUTE
     Dosage: 120 MG, QD
     Route: 048
  6. WARFARIN SODIUM [Concomitant]
     Dosage: 6 G, QD
     Route: 048
  7. ALLOPURINOL [Concomitant]
  8. PREDNISOLONE [Concomitant]
  9. DOTHIEPIN HYDROCHLORIDE [Concomitant]

REACTIONS (3)
  - BLOOD CREATININE INCREASED [None]
  - HYPERKALAEMIA [None]
  - RENAL IMPAIRMENT [None]
